FAERS Safety Report 25244491 (Version 1)
Quarter: 2025Q2

REPORT INFORMATION
  Report Type: Spontaneous
  Country: US (occurrence: US)
  Receive Date: 20250428
  Receipt Date: 20250428
  Transmission Date: 20250716
  Serious: Yes (Other)
  Sender: ALKEM
  Company Number: US-ALKEM LABORATORIES LIMITED-DE-ALKEM-2025-01373

PATIENT
  Sex: Female

DRUGS (2)
  1. SIROLIMUS [Suspect]
     Active Substance: SIROLIMUS
     Indication: Foetal cardiac disorder
     Dosage: 6 MILLIGRAM, QD (4 MILLIGRAM IN THE MORNING AND 2 MILLIGRAM IN THE EVENING)
     Route: 065
  2. SIROLIMUS [Suspect]
     Active Substance: SIROLIMUS
     Indication: Tuberous sclerosis complex
     Dosage: 7 MILLIGRAM, QD (4 MILLIGRAM IN THE MORNING AND 3 MILLIGRAM IN THE EVENING)
     Route: 065

REACTIONS (2)
  - Exposure during pregnancy [Unknown]
  - Off label use [Unknown]
